FAERS Safety Report 4746143-4 (Version None)
Quarter: 2005Q3

REPORT INFORMATION
  Report Type: 
  Country: None (occurrence: None)
  Receive Date: 20050816
  Receipt Date: 20050805
  Transmission Date: 20060218
  Serious: Yes (Other)
  Sender: FDA-Public Use
  Company Number: GXKR2005BR01395

PATIENT
  Age: 56 Year
  Sex: Female
  Weight: 62 kg

DRUGS (5)
  1. ATENOLOL (NGX) (ATENOLOL) TABLET, 50MG [Suspect]
     Indication: HYPERTENSION
     Dosage: 50 MG, BID, ORAL
     Route: 048
  2. CAPTOPRIL (NGX) (CAPTOPRIL) TABLET, 50MG [Suspect]
     Indication: HYPERTENSION
     Dosage: 50 MG, BID
  3. LIPITOR [Concomitant]
  4. CLORANA (HYDROCHLOROTHIAZIDE) [Concomitant]
  5. SIMVASTATIN [Concomitant]

REACTIONS (3)
  - ALLERGIC RESPIRATORY SYMPTOM [None]
  - DRUG INEFFECTIVE [None]
  - HYPERTENSION [None]
